FAERS Safety Report 5271811-8 (Version None)
Quarter: 2007Q1

REPORT INFORMATION
  Report Type: 
  Country: None (occurrence: None)
  Receive Date: 20070316
  Receipt Date: 20070302
  Transmission Date: 20070707
  Serious: Yes (Hospitalization)
  Sender: FDA-Public Use
  Company Number: 430001M07FRA

PATIENT
  Age: 72 Year
  Sex: Male

DRUGS (1)
  1. NOVANTRONE [Suspect]
     Indication: PROSTATE CANCER RECURRENT
     Dosage: INTRAVENOUS (NOT OTHERWISE SPECIFIED)
     Route: 042
     Dates: start: 20061201, end: 20061201

REACTIONS (1)
  - CARDIAC FAILURE [None]
